FAERS Safety Report 8259278-9 (Version None)
Quarter: 2012Q2

REPORT INFORMATION
  Report Type: 
  Country: None (occurrence: None)
  Receive Date: 20120404
  Receipt Date: 20120327
  Transmission Date: 20120825
  Serious: Yes (Hospitalization, Other)
  Sender: FDA-Public Use
  Company Number: US-BAYER-2012-029719

PATIENT
  Age: 88 Year
  Sex: Female
  Weight: 127 kg

DRUGS (5)
  1. NAPROXEN SODIUM [Suspect]
     Indication: MUSCULOSKELETAL PAIN
     Dosage: 220 MG, BID
     Route: 048
  2. VITAMIN B-12 [Concomitant]
     Indication: VITAMIN B12 DEFICIENCY
     Dosage: 1000 ?G, QD
  3. NAPROXEN SODIUM [Suspect]
     Indication: ARTHRITIS
  4. CHLORTHALIDONE [Concomitant]
     Dosage: 25 MG, QD
     Route: 048
  5. LISINOPRIL [Concomitant]
     Indication: HYPERTENSION
     Dosage: 10 MG, QD
     Route: 048

REACTIONS (5)
  - GASTRIC ULCER HAEMORRHAGE [None]
  - ATRIAL FIBRILLATION [None]
  - DUODENAL ULCER HAEMORRHAGE [None]
  - ASTHENIA [None]
  - IRON DEFICIENCY ANAEMIA [None]
